FAERS Safety Report 6523418-X (Version None)
Quarter: 2009Q4

REPORT INFORMATION
  Report Type: 
  Country: None (occurrence: None)
  Receive Date: 20091214
  Receipt Date: 20090522
  Transmission Date: 20100525
  Serious: Yes (Hospitalization)
  Sender: FDA-Public Use
  Company Number: 634551

PATIENT
  Age: 58 Year
  Sex: Female
  Weight: 45.8 kg

DRUGS (16)
  1. PEGASYS [Suspect]
     Indication: HEPATITIS C
     Dosage: 180 UG 1 PER 1 WEEK SUBCUTANEOUS
     Route: 058
     Dates: start: 20071112
  2. RIBAVIRIN [Suspect]
     Indication: HEPATITIS C
     Dosage: 1000 MG DAILY ORAL
     Route: 048
     Dates: start: 20071112
  3. CLIMARA [Concomitant]
  4. ACIPHEX [Concomitant]
  5. COLCHICINE (COLCHICINE) [Concomitant]
  6. COMBIVENT (IPRATROPIUM BROMIDE/SALBUTAMOL) [Concomitant]
  7. DUONEB (IPRATROPIUM BROMIDE/SALBUTAMOL) [Concomitant]
  8. SPIRONOLACTONE [Concomitant]
  9. FUROSEMIDE [Concomitant]
  10. AMBIEN [Concomitant]
  11. KLOR-CON [Concomitant]
  12. MORPHINE [Concomitant]
  13. K+ (POTASSIUM NOS) [Concomitant]
  14. VIT D (CHOLECALCIFEROL) [Concomitant]
  15. NEURONTIN [Concomitant]
  16. SOMA (*AMPICILLIN/*AMPICILLIN SODIUM/*CAFFEINE/*CARISOPRODOL/*CHLORZOX [Concomitant]

REACTIONS (4)
  - LEUKOPENIA [None]
  - NEUTROPENIA [None]
  - PNEUMONIA [None]
  - THROMBOCYTOPENIA [None]
